FAERS Safety Report 15270614 (Version 2)
Quarter: 2018Q3

REPORT INFORMATION
  Report Type: Report from Study
  Country: US (occurrence: AR)
  Receive Date: 20180813
  Receipt Date: 20180829
  Transmission Date: 20181010
  Serious: Yes (Hospitalization, Other)
  Sender: FDA-Public Use
  Company Number: US-SUNOVION-2015000749

PATIENT
  Age: 73 Year
  Sex: Female
  Weight: 93 kg

DRUGS (8)
  1. GLYCOPYRROLATE. [Suspect]
     Active Substance: GLYCOPYRROLATE
     Indication: CHRONIC OBSTRUCTIVE PULMONARY DISEASE
     Dosage: 1 DF, QD
     Route: 065
     Dates: start: 201403
  2. ROVARTAL [Concomitant]
     Route: 065
  3. ALPRAZOLAM. [Concomitant]
     Active Substance: ALPRAZOLAM
     Indication: PRODUCT USED FOR UNKNOWN INDICATION
     Route: 065
  4. VALSARTANA [Suspect]
     Active Substance: VALSARTAN
     Indication: PRODUCT USED FOR UNKNOWN INDICATION
     Dosage: UNKNOWN
     Route: 065
  5. GLYCOPYRROLATE. [Suspect]
     Active Substance: GLYCOPYRROLATE
     Indication: BRONCHIAL DISORDER
  6. FLUOXETIN [Suspect]
     Active Substance: FLUOXETINE HYDROCHLORIDE
     Indication: PRODUCT USED FOR UNKNOWN INDICATION
     Dosage: UNKNOWN
     Route: 065
  7. ENALAPRIL [Concomitant]
     Active Substance: ENALAPRIL
     Indication: PRODUCT USED FOR UNKNOWN INDICATION
     Dosage: 10 MG, UNK
     Route: 065
  8. GLYCOPYRROLATE. [Suspect]
     Active Substance: GLYCOPYRROLATE
     Indication: TOTAL LUNG CAPACITY DECREASED

REACTIONS (26)
  - Pulmonary mass [Recovered/Resolved]
  - Syncope [Unknown]
  - Pulmonary mass [Not Recovered/Not Resolved]
  - Gastrointestinal bacterial infection [Unknown]
  - Fall [Unknown]
  - Ear injury [Unknown]
  - Stress [Unknown]
  - Blood pressure abnormal [Unknown]
  - Feeling abnormal [Recovering/Resolving]
  - Eye irritation [Unknown]
  - Dizziness [Unknown]
  - Drug ineffective [Unknown]
  - Abdominal pain upper [Unknown]
  - Tuberculosis [Not Recovered/Not Resolved]
  - Sarcoidosis [Unknown]
  - Pulmonary function test decreased [Unknown]
  - Fatigue [Not Recovered/Not Resolved]
  - Device use error [Unknown]
  - Pain [Unknown]
  - Hypertension [Not Recovered/Not Resolved]
  - Gastrointestinal infection [Recovered/Resolved]
  - Head injury [Unknown]
  - Memory impairment [Unknown]
  - Dysgeusia [Recovering/Resolving]
  - Cough [Recovering/Resolving]
  - Intestinal transit time decreased [Unknown]

NARRATIVE: CASE EVENT DATE: 2014
